FAERS Safety Report 6857395-9 (Version None)
Quarter: 2010Q3

REPORT INFORMATION
  Report Type: 
  Country: None (occurrence: None)
  Receive Date: 20100719
  Receipt Date: 20080118
  Transmission Date: 20110219
  Serious: No
  Sender: FDA-Public Use
  Company Number: US-PFIZER INC-2008008826

PATIENT
  Sex: Female
  Weight: 68.2 kg

DRUGS (6)
  1. CHANTIX [Suspect]
     Indication: SMOKING CESSATION THERAPY
     Route: 048
     Dates: start: 20071201, end: 20071201
  2. ACETYLSALICYLIC ACID [Concomitant]
  3. VITAMINS [Concomitant]
  4. METOPROLOL [Concomitant]
  5. VENLAFAXINE [Concomitant]
  6. ALL OTHER THERAPEUTIC PRODUCTS [Concomitant]

REACTIONS (1)
  - NASOPHARYNGITIS [None]
